FAERS Safety Report 9350693 (Version 2)
Quarter: 2013Q3

REPORT INFORMATION
  Report Type: Spontaneous
  Country: FR (occurrence: FR)
  Receive Date: 20130617
  Receipt Date: 20130731
  Transmission Date: 20140515
  Serious: Yes (Other)
  Sender: FDA-Public Use
  Company Number: PHHY2013FR061128

PATIENT
  Age: 54 Year
  Sex: Female

DRUGS (2)
  1. RASILEZ [Suspect]
     Indication: HYPERTENSION
     Dosage: 300 MG, QD
     Route: 048
     Dates: start: 20110221, end: 20130528
  2. HYDROCHLOROTHIAZIDE [Concomitant]
     Indication: HYPERTENSION
     Dosage: 12.5 MG, QD
     Route: 048
     Dates: start: 20110221, end: 20130528

REACTIONS (6)
  - Renal failure [Not Recovered/Not Resolved]
  - Renal atrophy [Unknown]
  - Creatinine renal clearance decreased [Unknown]
  - Nephroangiosclerosis [Unknown]
  - Aplastic anaemia [Unknown]
  - Hyperparathyroidism secondary [Unknown]
